FAERS Safety Report 5974272-6 (Version None)
Quarter: 2008Q4

REPORT INFORMATION
  Report Type: 
  Country: None (occurrence: None)
  Receive Date: 20081128
  Receipt Date: 20081118
  Transmission Date: 20090506
  Serious: No
  Sender: FDA-Public Use
  Company Number: US025074

PATIENT
  Age: 45 Year
  Sex: Female
  Weight: 130.1823 kg

DRUGS (5)
  1. FENTORA [Suspect]
     Indication: HERNIA
     Dosage: 200 UG EVERY 6-8 HOUR PRN BUCCAL
     Route: 002
     Dates: start: 20081115
  2. DOXYCYLINE [Concomitant]
  3. PHENERGAN HCL [Concomitant]
  4. PROTONIX [Concomitant]
  5. BUMEX [Concomitant]

REACTIONS (6)
  - ABDOMINAL PAIN [None]
  - DRUG PRESCRIBING ERROR [None]
  - HEADACHE [None]
  - NAUSEA [None]
  - PAIN [None]
  - PRODUCT QUALITY ISSUE [None]
